FAERS Safety Report 5143062-9 (Version None)
Quarter: 2006Q4

REPORT INFORMATION
  Report Type: 
  Country: None (occurrence: None)
  Receive Date: 20061101
  Receipt Date: 20061101
  Transmission Date: 20070319
  Serious: Yes (Other)
  Sender: FDA-Public Use
  Company Number: None

PATIENT
  Age: 37 Year
  Sex: Female
  Weight: 92.0802 kg

DRUGS (1)
  1. EFFEXOR XR [Suspect]

REACTIONS (3)
  - DYSKINESIA [None]
  - DYSTONIA [None]
  - TREMOR [None]
